FAERS Safety Report 10328157 (Version 1)
Quarter: 2014Q3

REPORT INFORMATION
  Report Type: Spontaneous
  Country: US (occurrence: None)
  Receive Date: 20140716
  Receipt Date: 20140716
  Transmission Date: 20150326
  Serious: Yes (Hospitalization)
  Sender: FDA-Public Use
  Company Number: None

PATIENT
  Age: 74 Year
  Sex: Male

DRUGS (1)
  1. BRENTUXIMAB [Suspect]
     Active Substance: BRENTUXIMAB VEDOTIN
     Indication: SYSTEMIC MASTOCYTOSIS
     Dosage: 149 MG IV EVERY 3 WEEKS ?08JUL2014 (CYCLE1 D1)
     Route: 042
     Dates: start: 20140709

REACTIONS (2)
  - Haemorrhage intracranial [None]
  - Platelet count decreased [None]

NARRATIVE: CASE EVENT DATE: 20140713
